FAERS Safety Report 6859658-X (Version None)
Quarter: 2010Q3

REPORT INFORMATION
  Report Type: 
  Country: None (occurrence: None)
  Receive Date: 20100719
  Receipt Date: 20100709
  Transmission Date: 20110219
  Serious: Yes (Hospitalization)
  Sender: FDA-Public Use
  Company Number: US-ABBOTT-10P-163-0656400-00

PATIENT
  Age: 35 Year
  Sex: Male

DRUGS (5)
  1. HUMIRA [Suspect]
     Indication: ANKYLOSING SPONDYLITIS
     Dates: start: 20060701
  2. ACTOS [Concomitant]
     Indication: DIABETES MELLITUS
     Dosage: 30 MG DAILY
     Route: 048
  3. LISINOPRIL AND HYDROCHLOROTHIAZIDE [Concomitant]
     Indication: HYPERTENSION
     Dosage: 20MG/25MG DAILY
     Route: 048
  4. PAIN MEDICATION [Concomitant]
     Indication: PAIN
  5. HIGH CHOLESTEROL MEDICATION [Concomitant]
     Indication: BLOOD CHOLESTEROL INCREASED

REACTIONS (3)
  - ABDOMINAL PAIN [None]
  - DIARRHOEA [None]
  - NAUSEA [None]
